FAERS Safety Report 13283009 (Version 1)
Quarter: 2017Q1

REPORT INFORMATION
  Report Type: Spontaneous
  Country: US (occurrence: US)
  Receive Date: 20170301
  Receipt Date: 20170301
  Transmission Date: 20170428
  Serious: No
  Sender: FDA-Public Use
  Company Number: US-ABBVIE-16P-163-1574822-00

PATIENT
  Age: 72 Year
  Sex: Male

DRUGS (7)
  1. ANDROGEL [Suspect]
     Active Substance: TESTOSTERONE
     Dosage: RETURNED TO ORIGINAL DOSAGE
     Route: 061
  2. SOOLANTRA [Suspect]
     Active Substance: IVERMECTIN
     Indication: ROSACEA
     Dosage: STARTED NO MORE THAN TWO WEEKS AGO IN JAN 2016
     Route: 061
     Dates: start: 201601, end: 20160215
  3. ANDROGEL [Suspect]
     Active Substance: TESTOSTERONE
     Indication: BLOOD TESTOSTERONE
     Route: 061
  4. VYTORIN [Suspect]
     Active Substance: EZETIMIBE\SIMVASTATIN
     Dosage: DOSAGE INCREASED AROUND SAME TIME STARTED SOOLANTRA
     Route: 048
  5. VYTORIN [Suspect]
     Active Substance: EZETIMIBE\SIMVASTATIN
     Indication: BLOOD CHOLESTEROL
     Route: 048
  6. ANDROGEL [Suspect]
     Active Substance: TESTOSTERONE
     Dosage: DOSAGE INCREASED AROUND SAME TIME STARTED SOOLANTRA
     Route: 061
  7. VYTORIN [Suspect]
     Active Substance: EZETIMIBE\SIMVASTATIN
     Dosage: RETURNED TO ORIGINAL DOSAGE
     Route: 048

REACTIONS (5)
  - Renal pain [Recovered/Resolved]
  - Testicular pain [Recovered/Resolved]
  - Pain [Recovered/Resolved]
  - Arthralgia [Recovered/Resolved]
  - Red blood cell count increased [Recovered/Resolved]
